FAERS Safety Report 5151044-6 (Version None)
Quarter: 2006Q4

REPORT INFORMATION
  Report Type: 
  Country: None (occurrence: None)
  Receive Date: 20061114
  Receipt Date: 20061114
  Transmission Date: 20070319
  Serious: Yes (Death)
  Sender: FDA-Public Use
  Company Number: None

PATIENT
  Sex: Female
  Weight: 55.7924 kg

DRUGS (4)
  1. VINORELBINE TARTRATE [Suspect]
     Indication: VULVAL CANCER METASTATIC
     Dosage: 20 MG/M2  D 1,8, 15 Q 28 D  IV
     Route: 042
     Dates: start: 20060914
  2. VINORELBINE TARTRATE [Suspect]
     Indication: VULVAL CANCER METASTATIC
     Dosage: 20 MG/M2  D 1,8, 15 Q 28 D  IV
     Route: 042
     Dates: start: 20060921
  3. VINORELBINE TARTRATE [Suspect]
     Indication: VULVAL CANCER METASTATIC
     Dosage: 20 MG/M2  D 1,8, 15 Q 28 D  IV
     Route: 042
     Dates: start: 20060928
  4. LAPATINIB 1000 MG [Suspect]
     Indication: VULVAL CANCER METASTATIC
     Dosage: 1000MG  DAILY  PO
     Route: 048
     Dates: start: 20060914, end: 20061004

REACTIONS (1)
  - DISEASE PROGRESSION [None]
